FAERS Safety Report 10392914 (Version 3)
Quarter: 2015Q1

REPORT INFORMATION
  Report Type: Report from Study
  Country: CA (occurrence: CA)
  Receive Date: 20140819
  Receipt Date: 20150116
  Transmission Date: 20150720
  Serious: Yes (Hospitalization, Other)
  Sender: FDA-Public Use
  Company Number: CA-JNJFOC-20140812101

PATIENT
  Sex: Male
  Weight: 83 kg

DRUGS (17)
  1. HYDROCHLOROTHIAZIDE. [Concomitant]
     Active Substance: HYDROCHLOROTHIAZIDE
     Route: 065
  2. PENTASA [Concomitant]
     Active Substance: MESALAMINE
     Route: 065
  3. REMICADE [Suspect]
     Active Substance: INFLIXIMAB
     Indication: RHEUMATOID ARTHRITIS
     Route: 042
     Dates: start: 20100509, end: 20140813
  4. BICALUTAMIDE. [Concomitant]
     Active Substance: BICALUTAMIDE
     Route: 065
  5. METHOTREXATE [Concomitant]
     Active Substance: METHOTREXATE
     Route: 065
  6. HYDROMORPH [Concomitant]
     Active Substance: HYDROMORPHONE
     Route: 065
  7. ACETONE [Concomitant]
     Active Substance: ACETONE
     Route: 065
  8. DOCETAXEL. [Concomitant]
     Active Substance: DOCETAXEL
     Route: 042
  9. PAXIL [Concomitant]
     Active Substance: PAROXETINE HYDROCHLORIDE
     Route: 065
  10. CALCIUM [Concomitant]
     Active Substance: CALCIUM
     Route: 065
  11. ZANTAC [Concomitant]
     Active Substance: RANITIDINE HYDROCHLORIDE
     Route: 065
  12. OXYCONTIN [Concomitant]
     Active Substance: OXYCODONE HYDROCHLORIDE
     Route: 065
  13. ATENOLOL. [Concomitant]
     Active Substance: ATENOLOL
     Route: 065
  14. NIACIN. [Concomitant]
     Active Substance: NIACIN
     Route: 065
  15. IRON [Concomitant]
     Active Substance: IRON
     Route: 065
  16. GABAPENTIN. [Concomitant]
     Active Substance: GABAPENTIN
     Route: 065
  17. VITAMIN D [Concomitant]
     Active Substance: CHOLECALCIFEROL
     Route: 065

REACTIONS (6)
  - Prostate cancer metastatic [Unknown]
  - Nausea [Unknown]
  - Vomiting [Unknown]
  - Febrile neutropenia [Unknown]
  - Weight decreased [Unknown]
  - Productive cough [Unknown]

NARRATIVE: CASE EVENT DATE: 2014
